FAERS Safety Report 10629200 (Version 1)
Quarter: 2014Q4

REPORT INFORMATION
  Report Type: Spontaneous
  Country: US (occurrence: US)
  Receive Date: 20141205
  Receipt Date: 20141205
  Transmission Date: 20150529
  Serious: No
  Sender: FDA-Public Use
  Company Number: US-BRISTOL-MYERS SQUIBB COMPANY-21372834

PATIENT
  Age: 70 Year
  Sex: Female
  Weight: 86.62 kg

DRUGS (6)
  1. BYETTA [Suspect]
     Active Substance: EXENATIDE
     Indication: GLUCOSE TOLERANCE IMPAIRED
     Dosage: 10MCG
     Dates: start: 201401, end: 20140826
  2. VICTOZA [Concomitant]
     Active Substance: LIRAGLUTIDE
  3. METFORMIN HCL [Concomitant]
     Active Substance: METFORMIN HYDROCHLORIDE
  4. BYETTA [Suspect]
     Active Substance: EXENATIDE
     Indication: WEIGHT DECREASED
     Dosage: 10MCG
     Dates: start: 201401, end: 20140826
  5. SYMLIN [Suspect]
     Active Substance: PRAMLINTIDE ACETATE
     Indication: DIABETES MELLITUS
     Dosage: STOPPED ON 02SEP2014?RESTD 60MCG TID DOSE ON 06SEP2014
     Dates: start: 20140827
  6. SYMLIN [Suspect]
     Active Substance: PRAMLINTIDE ACETATE
     Indication: WEIGHT DECREASED
     Dosage: STOPPED ON 02SEP2014?RESTD 60MCG TID DOSE ON 06SEP2014
     Dates: start: 20140827

REACTIONS (3)
  - Headache [Recovering/Resolving]
  - Drug ineffective [Unknown]
  - Nausea [Recovering/Resolving]
